FAERS Safety Report 9272471 (Version 1)
Quarter: 2013Q2

REPORT INFORMATION
  Report Type: Spontaneous
  Country: US (occurrence: US)
  Receive Date: 20130506
  Receipt Date: 20130506
  Transmission Date: 20140414
  Serious: Yes (Hospitalization)
  Sender: FDA-Public Use
  Company Number: US-GLAXOSMITHKLINE-A1021658A

PATIENT
  Age: 85 Year
  Sex: Female

DRUGS (7)
  1. ADVAIR [Suspect]
     Indication: CHRONIC OBSTRUCTIVE PULMONARY DISEASE
     Dosage: 1PUFF TWICE PER DAY
     Route: 055
     Dates: start: 2010
  2. ANTIBIOTICS [Suspect]
     Indication: PNEUMONIA
     Route: 042
  3. GLIPIZIDE [Concomitant]
  4. METFORMIN [Concomitant]
  5. LASIX [Concomitant]
  6. ALBUTEROL [Concomitant]
  7. SPIRIVA [Concomitant]

REACTIONS (3)
  - Pneumonia [Recovered/Resolved]
  - Clostridium difficile infection [Unknown]
  - Cough [Unknown]
